FAERS Safety Report 19667247 (Version 1)
Quarter: 2021Q3

REPORT INFORMATION
  Report Type: Spontaneous
  Country: US (occurrence: US)
  Receive Date: 20210806
  Receipt Date: 20210806
  Transmission Date: 20211014
  Serious: Yes (Other)
  Sender: FDA-Public Use
  Company Number: US-SA-2021SA259788

PATIENT
  Age: 40 Year
  Sex: Female

DRUGS (4)
  1. KEVZARA [Suspect]
     Active Substance: SARILUMAB
     Indication: RHEUMATOID ARTHRITIS
     Dosage: 200 MG, QOW
     Route: 058
     Dates: start: 20200810
  2. KEVZARA [Suspect]
     Active Substance: SARILUMAB
     Indication: PSORIATIC ARTHROPATHY
  3. KEVZARA [Suspect]
     Active Substance: SARILUMAB
     Indication: ANKYLOSING SPONDYLITIS
  4. KEVZARA [Suspect]
     Active Substance: SARILUMAB
     Indication: SPONDYLOARTHROPATHY

REACTIONS (6)
  - Ankylosing spondylitis [Unknown]
  - Spondyloarthropathy [Unknown]
  - Psoriatic arthropathy [Unknown]
  - Rheumatoid arthritis [Unknown]
  - Condition aggravated [Unknown]
  - Product use in unapproved indication [Unknown]

NARRATIVE: CASE EVENT DATE: 20200810
